FAERS Safety Report 6344869-2 (Version None)
Quarter: 2009Q3

REPORT INFORMATION
  Report Type: 
  Country: None (occurrence: None)
  Receive Date: 20090909
  Receipt Date: 20090825
  Transmission Date: 20100115
  Serious: Yes (Other)
  Sender: FDA-Public Use
  Company Number: US-RANBAXY-2009US-27110

PATIENT

DRUGS (2)
  1. NEFAZODONE HCL [Suspect]
     Indication: SEASONAL AFFECTIVE DISORDER
     Dosage: 400 MG, EVERY NIGHT
     Route: 065
     Dates: start: 19980201
  2. NEFAZODONE HCL [Suspect]
     Dosage: 275 MG, EVERY NIGHT
     Route: 065

REACTIONS (2)
  - DRUG TOXICITY [None]
  - VISUAL IMPAIRMENT [None]
